FAERS Safety Report 13139405 (Version 2)
Quarter: 2017Q1

REPORT INFORMATION
  Report Type: Spontaneous
  Country: GB (occurrence: GB)
  Receive Date: 20170123
  Receipt Date: 20170202
  Transmission Date: 20170428
  Serious: Yes (Other)
  Sender: FDA-Public Use
  Company Number: GB-GLAXOSMITHKLINE-GB2017006758

PATIENT
  Age: 56 Year
  Sex: Male
  Weight: 76 kg

DRUGS (5)
  1. TERBINAFINE. [Suspect]
     Active Substance: TERBINAFINE
     Indication: ONYCHOMYCOSIS
     Dosage: UNK
     Route: 048
     Dates: start: 20161123, end: 20170109
  2. SILDENAFIL. [Concomitant]
     Active Substance: SILDENAFIL
     Indication: PRODUCT USED FOR UNKNOWN INDICATION
     Dosage: 1 DF, QW2
     Route: 065
     Dates: start: 20151214
  3. AMOROLFINE [Suspect]
     Active Substance: AMOROLFINE
     Indication: PRODUCT USED FOR UNKNOWN INDICATION
     Dosage: APPLY AS DIRECTED
     Route: 065
     Dates: start: 20170109
  4. MICONAZOLE. [Concomitant]
     Active Substance: MICONAZOLE
     Indication: PRODUCT USED FOR UNKNOWN INDICATION
     Dosage: 1 DF, TID
     Route: 065
     Dates: start: 20161228, end: 20170104
  5. TADALAFIL [Concomitant]
     Active Substance: TADALAFIL
     Indication: PRODUCT USED FOR UNKNOWN INDICATION
     Dosage: USE AS DIRECTED
     Route: 065
     Dates: start: 20160818

REACTIONS (2)
  - Rash macular [Unknown]
  - Drug eruption [Unknown]

NARRATIVE: CASE EVENT DATE: 20170102
